FAERS Safety Report 17923770 (Version 1)
Quarter: 2020Q2

REPORT INFORMATION
  Report Type: Spontaneous
  Country: US (occurrence: US)
  Receive Date: 20200622
  Receipt Date: 20200622
  Transmission Date: 20200714
  Serious: No
  Sender: FDA-Public Use
  Company Number: None

PATIENT

DRUGS (2)
  1. HEPARIN SODIUM 25,000 USP UNITS PER 500 ML IN 5% DEXTROSE INJECTION [Suspect]
     Active Substance: HEPARIN SODIUM
     Route: 042
  2. 3% SODIUM CHLORIDE INJECTION USP (HYPERTONIC) [Suspect]
     Active Substance: SODIUM CHLORIDE
     Route: 042

REACTIONS (1)
  - Product packaging confusion [None]
